FAERS Safety Report 9913739 (Version 2)
Quarter: 2014Q2

REPORT INFORMATION
  Report Type: Report from Study
  Country: US (occurrence: US)
  Receive Date: 20140220
  Receipt Date: 20140522
  Transmission Date: 20141212
  Serious: Yes (Hospitalization)
  Sender: FDA-Public Use
  Company Number: 2014SP000459

PATIENT
  Age: 41 Year
  Sex: Female
  Weight: 87 kg

DRUGS (5)
  1. SM-13496 [Suspect]
     Indication: SCHIZOPHRENIA
     Route: 048
     Dates: start: 20130819, end: 20130929
  2. SM-13496 [Suspect]
     Indication: SCHIZOPHRENIA
     Route: 048
     Dates: start: 20131003
  3. SM-13496 [Suspect]
     Indication: SCHIZOPHRENIA
     Route: 048
     Dates: start: 20130930, end: 20131002
  4. ATIVAN [Concomitant]
     Indication: AGITATION
     Route: 048
     Dates: start: 20130813
  5. SIMETHICONE [Concomitant]
     Indication: DYSPEPSIA
     Route: 048
     Dates: start: 20130824, end: 20130824

REACTIONS (1)
  - Psychotic disorder [Recovered/Resolved]
